FAERS Safety Report 25944127 (Version 1)
Quarter: 2025Q4

REPORT INFORMATION
  Report Type: Report from Study
  Country: BR (occurrence: BR)
  Receive Date: 20251021
  Receipt Date: 20251021
  Transmission Date: 20260117
  Serious: Yes (Hospitalization)
  Sender: JOHNSON AND JOHNSON
  Company Number: BR-JNJFOC-20251017466

PATIENT
  Age: 51 Year
  Sex: Female
  Weight: 85 kg

DRUGS (1)
  1. INFLIXIMAB [Suspect]
     Active Substance: INFLIXIMAB
     Indication: Rheumatoid arthritis
     Route: 041

REACTIONS (3)
  - Hospitalisation [Unknown]
  - Influenza [Unknown]
  - Vomiting [Unknown]
